FAERS Safety Report 6698978-9 (Version None)
Quarter: 2010Q2

REPORT INFORMATION
  Report Type: 
  Country: None (occurrence: None)
  Receive Date: 20100427
  Receipt Date: 20100420
  Transmission Date: 20101027
  Serious: Yes (Other)
  Sender: FDA-Public Use
  Company Number: B0649263A

PATIENT
  Sex: Male

DRUGS (3)
  1. ZANTAC [Suspect]
     Indication: DRUG USE FOR UNKNOWN INDICATION
     Dosage: 150MG PER DAY
     Route: 048
  2. ZANTAC [Suspect]
     Dosage: 75MG PER DAY
     Route: 048
  3. ASPIRIN [Concomitant]
     Route: 048

REACTIONS (2)
  - ALTERED STATE OF CONSCIOUSNESS [None]
  - CARDIAC DISORDER [None]
